FAERS Safety Report 15590231 (Version 3)
Quarter: 2019Q4

REPORT INFORMATION
  Report Type: Spontaneous
  Country: CA (occurrence: CA)
  Receive Date: 20181106
  Receipt Date: 20191018
  Transmission Date: 20200122
  Serious: Yes (Hospitalization, Other)
  Sender: FDA-Public Use
  Company Number: CA-BAUSCH-BL-2018-030150

PATIENT
  Age: 2 Day
  Sex: Male
  Weight: 3 kg

DRUGS (15)
  1. BUPRENORPHINE/NALOXONE [Suspect]
     Active Substance: BUPRENORPHINE\NALOXONE
     Indication: DRUG DEPENDENCE
     Route: 064
  2. NICOTINE. [Suspect]
     Active Substance: NICOTINE
     Route: 064
  3. VITAMIN D [Suspect]
     Active Substance: VITAMIN D NOS
     Route: 064
  4. BUPRENORPHINE. [Suspect]
     Active Substance: BUPRENORPHINE
     Indication: DRUG DEPENDENCE
     Dosage: FORM: FILM, SOLUBLE
     Route: 063
  5. TRAZODONE [Suspect]
     Active Substance: TRAZODONE HYDROCHLORIDE
     Indication: INSOMNIA
     Route: 064
  6. VITAMINS [Suspect]
     Active Substance: VITAMINS
     Route: 064
  7. SUBOXONE [Suspect]
     Active Substance: BUPRENORPHINE HYDROCHLORIDE\NALOXONE HYDROCHLORIDE
     Route: 064
  8. VITAMIN D [Suspect]
     Active Substance: VITAMIN D NOS
     Indication: PRODUCT USED FOR UNKNOWN INDICATION
     Route: 063
  9. VITAMINS [Suspect]
     Active Substance: VITAMINS
     Indication: PRODUCT USED FOR UNKNOWN INDICATION
     Route: 063
  10. ZOFRAN [Suspect]
     Active Substance: ONDANSETRON HYDROCHLORIDE
     Indication: NAUSEA
  11. BUPRENORPHINE. [Suspect]
     Active Substance: BUPRENORPHINE
     Route: 064
  12. NICOTINE. [Suspect]
     Active Substance: NICOTINE
     Indication: PRODUCT USED FOR UNKNOWN INDICATION
     Route: 063
  13. WELLBUTRIN XL [Suspect]
     Active Substance: BUPROPION HYDROCHLORIDE
     Indication: DEPRESSION
     Dosage: EXTENDED RELEASE TABLETS
     Route: 064
  14. SUBOXONE [Suspect]
     Active Substance: BUPRENORPHINE HYDROCHLORIDE\NALOXONE HYDROCHLORIDE
     Indication: DRUG DEPENDENCE
     Dosage: FORM: FILM, SOLUBLE
     Route: 063
  15. ZOFRAN [Suspect]
     Active Substance: ONDANSETRON HYDROCHLORIDE
     Indication: VOMITING
     Route: 064

REACTIONS (4)
  - Exposure via breast milk [Unknown]
  - Drug withdrawal syndrome neonatal [Unknown]
  - Poor feeding infant [Unknown]
  - Foetal exposure during pregnancy [Unknown]
